FAERS Safety Report 8614892-3 (Version None)
Quarter: 2012Q3

REPORT INFORMATION
  Report Type: 
  Country: None (occurrence: None)
  Receive Date: 20120823
  Receipt Date: 20120706
  Transmission Date: 20120928
  Serious: No
  Sender: FDA-Public Use
  Company Number: US-BRISTOL-MYERS SQUIBB COMPANY-16773855

PATIENT

DRUGS (1)
  1. KOMBIGLYZE XR [Suspect]
     Dosage: KOMBIGLYZE XR TABLET 2.5MG/1000MG, 1J6033P, 1J5019P

REACTIONS (1)
  - MEDICATION RESIDUE [None]
